FAERS Safety Report 5070376-3 (Version None)
Quarter: 2006Q3

REPORT INFORMATION
  Report Type: 
  Country: None (occurrence: None)
  Receive Date: 20060731
  Receipt Date: 20060718
  Transmission Date: 20061208
  Serious: Yes (Death, Life-Threatening)
  Sender: FDA-Public Use
  Company Number: 2006JP001813

PATIENT
  Age: 64 Year
  Sex: Male

DRUGS (11)
  1. TACROLIMUS [Suspect]
     Indication: RHEUMATOID ARTHRITIS
     Dosage: 2 MG ORAL
     Route: 048
     Dates: start: 20060302, end: 20060315
  2. PREDNISOLONE [Suspect]
     Indication: RHEUMATOID ARTHRITIS
     Dosage: 12 MG ORAL
     Route: 048
     Dates: end: 20060620
  3. GASTER [Concomitant]
  4. MOBIC [Concomitant]
  5. NORVASC [Concomitant]
  6. LOXONIN                  (LOXOPROFEN SODIUM) [Concomitant]
  7. LIPITOR [Concomitant]
  8. OMEPRAZOLE [Concomitant]
  9. PROMAC               (POLAPREZINC) [Concomitant]
  10. MUCOSTA                (REBAMIPIDE) [Concomitant]
  11. FOSAMAC              (ALENDRONATE SODIUM) [Concomitant]

REACTIONS (5)
  - CONDITION AGGRAVATED [None]
  - IMMUNOSUPPRESSION [None]
  - INTERSTITIAL LUNG DISEASE [None]
  - PNEUMOCYSTIS JIROVECI PNEUMONIA [None]
  - RESPIRATORY FAILURE [None]
